FAERS Safety Report 8036735-1 (Version None)
Quarter: 2012Q1

REPORT INFORMATION
  Report Type: 
  Country: None (occurrence: None)
  Receive Date: 20120111
  Receipt Date: 20120109
  Transmission Date: 20120608
  Serious: No
  Sender: FDA-Public Use
  Company Number: US-TEVA-316658USA

PATIENT
  Sex: Female
  Weight: 93.07 kg

DRUGS (2)
  1. COPAXONE [Suspect]
     Indication: MULTIPLE SCLEROSIS
     Dosage: 20 MILLIGRAM;
     Route: 058
     Dates: start: 20111221
  2. OXYBUTYNIN [Concomitant]
     Route: 048

REACTIONS (1)
  - NAUSEA [None]
